FAERS Safety Report 5835603-0 (Version None)
Quarter: 2008Q3

REPORT INFORMATION
  Report Type: 
  Country: None (occurrence: None)
  Receive Date: 20080728
  Receipt Date: 20080626
  Transmission Date: 20090109
  Serious: No
  Sender: FDA-Public Use
  Company Number: 2008US001272

PATIENT
  Sex: Female

DRUGS (2)
  1. VAPRISOL [Suspect]
     Indication: DRUG USE FOR UNKNOWN INDICATION
     Dosage: 4 ML, PARENTERAL ; 16 ML, PARENTERAL
     Route: 051
  2. NATRECOR [Concomitant]

REACTIONS (1)
  - DRUG INEFFECTIVE [None]
